FAERS Safety Report 6542488-6 (Version None)
Quarter: 2010Q1

REPORT INFORMATION
  Report Type: 
  Country: None (occurrence: None)
  Receive Date: 20100119
  Receipt Date: 20100112
  Transmission Date: 20100710
  Serious: Yes (Hospitalization)
  Sender: FDA-Public Use
  Company Number: NL-TEVA-220933ISR

PATIENT
  Sex: Male
  Weight: 71 kg

DRUGS (3)
  1. METFORMIN HCL [Suspect]
     Indication: TYPE 2 DIABETES MELLITUS
     Dates: start: 20091209, end: 20091216
  2. TOLBUTAMIDE [Suspect]
     Indication: TYPE 2 DIABETES MELLITUS
     Dates: start: 20050101, end: 20091216
  3. SIMVASTATIN [Suspect]
     Indication: HYPERCHOLESTEROLAEMIA
     Dates: start: 20050101, end: 20091216

REACTIONS (1)
  - HEPATITIS [None]
